FAERS Safety Report 8867959 (Version 1)
Quarter: 2012Q4

REPORT INFORMATION
  Report Type: 
  Country: US (occurrence: US)
  Receive Date: 20121026
  Receipt Date: 20121026
  Transmission Date: 20130627
  Serious: No
  Sender: FDA-Public Use
  Company Number: US-AMGEN-USASP2012040687

PATIENT
  Age: 57 Year
  Sex: Female

DRUGS (3)
  1. ENBREL [Suspect]
     Indication: ANKYLOSING SPONDYLITIS
     Dates: start: 20120525
  2. SULFASALAZINE [Concomitant]
     Dosage: 2 mg, qod
     Dates: start: 2012
  3. LEFLUNOMIDE [Concomitant]
     Dosage: 1 mg, qd
     Dates: start: 2011

REACTIONS (3)
  - Oral discomfort [Not Recovered/Not Resolved]
  - Glossodynia [Not Recovered/Not Resolved]
  - Inflammation [Not Recovered/Not Resolved]
